FAERS Safety Report 15494533 (Version 1)
Quarter: 2018Q4

REPORT INFORMATION
  Report Type: Spontaneous
  Country: US (occurrence: US)
  Receive Date: 20181012
  Receipt Date: 20181012
  Transmission Date: 20190205
  Serious: No
  Sender: FDA-Public Use
  Company Number: US-PFIZER INC-2018410698

PATIENT
  Age: 67 Year
  Sex: Female
  Weight: 146.6 kg

DRUGS (2)
  1. LYRICA [Suspect]
     Active Substance: PREGABALIN
     Indication: ARTHRITIS
     Dosage: 100 MG, 2X/DAY (100 MG CAPSULE BY MOUTH TWICE A DAY)
     Route: 048
     Dates: start: 201808
  2. LYRICA [Suspect]
     Active Substance: PREGABALIN
     Indication: NEUROPATHY PERIPHERAL
     Dosage: 100 MG, 3X/DAY (100 MG 3 TIMES A DAY FOR THE FIRST 3 WEEKS OF WEEK)
     Route: 048

REACTIONS (5)
  - Musculoskeletal discomfort [Recovered/Resolved]
  - Hypoaesthesia [Recovering/Resolving]
  - Back pain [Unknown]
  - Product dose omission [Recovering/Resolving]
  - Intentional product misuse [Not Recovered/Not Resolved]

NARRATIVE: CASE EVENT DATE: 201809
